FAERS Safety Report 19624471 (Version 1)
Quarter: 2021Q3

REPORT INFORMATION
  Report Type: Report from Study
  Country: US (occurrence: US)
  Receive Date: 20210728
  Receipt Date: 20210728
  Transmission Date: 20211014
  Serious: Yes (Other)
  Sender: FDA-Public Use
  Company Number: US-MYLANLABS-2021M1046064

PATIENT
  Sex: Female

DRUGS (3)
  1. CARBOPLATIN. [Suspect]
     Active Substance: CARBOPLATIN
     Indication: NEOPLASM MALIGNANT
     Dosage: UNK, CYCLE, AUC 5 ON DAY 1
     Route: 042
  2. PACLITAXEL. [Suspect]
     Active Substance: PACLITAXEL
     Indication: NEOPLASM MALIGNANT
     Dosage: 80 MILLIGRAM/SQ. METER, CYCLE, ON DAY 1, 8, 15
     Route: 042
  3. SELINEXOR [Suspect]
     Active Substance: SELINEXOR
     Indication: NEOPLASM MALIGNANT
     Dosage: 30 MILLIGRAM/SQ. METER, CYCLE, ON DAY 1, 4, 8, 11, 15, AND 18
     Route: 048

REACTIONS (1)
  - Syncope [Unknown]
